FAERS Safety Report 23658984 (Version 3)
Quarter: 2024Q2

REPORT INFORMATION
  Report Type: Spontaneous
  Country: CH (occurrence: CH)
  Receive Date: 20240321
  Receipt Date: 20240412
  Transmission Date: 20240716
  Serious: Yes (Other)
  Sender: FDA-Public Use
  Company Number: CH-ALNYLAM PHARMACEUTICALS, INC.-ALN-2023-000872

PATIENT

DRUGS (3)
  1. ONPATTRO [Suspect]
     Active Substance: PATISIRAN SODIUM
     Indication: Hereditary neuropathic amyloidosis
     Dosage: 300 MICROGRAM/KILOGRAM, Q3W
     Route: 042
     Dates: start: 20191108, end: 20191108
  2. ONPATTRO [Suspect]
     Active Substance: PATISIRAN SODIUM
     Dosage: UNK (2 VIALS)
     Route: 042
     Dates: start: 20221125, end: 20221125
  3. VITAMIN A [Concomitant]
     Active Substance: VITAMIN A
     Indication: Vitamin supplementation
     Dosage: 4000 UI, 3X/WEEK
     Route: 065

REACTIONS (7)
  - Postpartum haemorrhage [Unknown]
  - Uterine atony [Unknown]
  - Neuropathy peripheral [Unknown]
  - Maternal exposure during pregnancy [Unknown]
  - Vitamin A decreased [Recovering/Resolving]
  - Dysuria [Not Recovered/Not Resolved]
  - Constipation [Not Recovered/Not Resolved]

NARRATIVE: CASE EVENT DATE: 20221201
